FAERS Safety Report 7162784-1 (Version None)
Quarter: 2010Q4

REPORT INFORMATION
  Report Type: 
  Country: None (occurrence: None)
  Receive Date: 20101215
  Receipt Date: 20091214
  Transmission Date: 20110411
  Serious: Yes (Other)
  Sender: FDA-Public Use
  Company Number: US-PFIZER INC-2009309928

PATIENT
  Age: 79 Year
  Sex: Female
  Weight: 45.351 kg

DRUGS (9)
  1. LIPITOR [Suspect]
     Indication: BLOOD CHOLESTEROL INCREASED
     Dosage: 20 MG, 1X/DAY
     Dates: end: 20090101
  2. LIPITOR [Suspect]
     Dosage: 40 MG, 1X/DAY
  3. CRESTOR [Suspect]
     Indication: BLOOD CHOLESTEROL INCREASED
     Dosage: 20 MG, UNK
     Dates: start: 20090101
  4. ATENOLOL [Concomitant]
     Dosage: UNK
  5. HYDROCHLOROTHIAZIDE [Concomitant]
     Dosage: UNK
  6. ACETYLSALICYLIC ACID [Concomitant]
     Dosage: 81 MG, UNK
  7. FOSAMAX [Concomitant]
     Dosage: UNK
  8. FISH OIL [Concomitant]
     Dosage: UNK
  9. MULTI-VITAMINS [Concomitant]
     Dosage: UNK

REACTIONS (3)
  - ALOPECIA [None]
  - BLOOD CHOLESTEROL INCREASED [None]
  - MYOCARDIAL INFARCTION [None]
